FAERS Safety Report 10430636 (Version 1)
Quarter: 2014Q3

REPORT INFORMATION
  Report Type: Spontaneous
  Country: US (occurrence: None)
  Receive Date: 20140903
  Receipt Date: 20140903
  Transmission Date: 20150326
  Serious: Yes (Other)
  Sender: FDA-Public Use
  Company Number: None

PATIENT
  Age: 68 Year
  Sex: Female
  Weight: 68.95 kg

DRUGS (1)
  1. ESCITALOPRAM [Suspect]
     Active Substance: ESCITALOPRAM OXALATE
     Indication: DEPRESSION
     Dosage: 1.5 PILLS, ONCE DAILY, TAKEN BY MOUTH
     Route: 048
     Dates: start: 20140819, end: 20140831

REACTIONS (11)
  - Product substitution issue [None]
  - Insomnia [None]
  - Restlessness [None]
  - Disturbance in attention [None]
  - Depression [None]
  - Restless legs syndrome [None]
  - Dyskinesia [None]
  - Feeling abnormal [None]
  - Impaired driving ability [None]
  - Condition aggravated [None]
  - Agitation [None]

NARRATIVE: CASE EVENT DATE: 20140819
